FAERS Safety Report 8556918-1 (Version None)
Quarter: 2012Q3

REPORT INFORMATION
  Report Type: 
  Country: None (occurrence: None)
  Receive Date: 20120801
  Receipt Date: 20120723
  Transmission Date: 20120928
  Serious: Yes (Other)
  Sender: FDA-Public Use
  Company Number: BR-ROCHE-1070895

PATIENT
  Sex: Female

DRUGS (2)
  1. XOLAIR [Suspect]
     Indication: PRODUCT USED FOR UNKNOWN INDICATION
     Route: 065
  2. XOLAIR [Suspect]
     Route: 065
     Dates: start: 20120514

REACTIONS (4)
  - MALAISE [None]
  - PNEUMONIA [None]
  - BRONCHITIS [None]
  - BONE PAIN [None]
